FAERS Safety Report 23075075 (Version 1)
Quarter: 2023Q4

REPORT INFORMATION
  Report Type: Spontaneous
  Country: JP (occurrence: JP)
  Receive Date: 20231017
  Receipt Date: 20231017
  Transmission Date: 20240110
  Serious: Yes (Life-Threatening, Hospitalization, Other)
  Sender: FDA-Public Use
  Company Number: JP-MH-2023M1086786AA

PATIENT
  Age: 55 Year
  Sex: Female
  Weight: 70.5 kg

DRUGS (9)
  1. CARBOPLATIN [Suspect]
     Active Substance: CARBOPLATIN
     Indication: Breast cancer
     Dosage: 141 MILLIGRAM, QD
     Route: 042
     Dates: start: 20230425, end: 20230425
  2. CARBOPLATIN [Suspect]
     Active Substance: CARBOPLATIN
     Dosage: 141 MILLIGRAM, QD
     Route: 042
     Dates: start: 20230418, end: 20230418
  3. CARBOPLATIN [Suspect]
     Active Substance: CARBOPLATIN
     Dosage: 141 MILLIGRAM, QD
     Route: 042
     Dates: start: 20230411, end: 20230411
  4. PACLITAXEL [Suspect]
     Active Substance: PACLITAXEL
     Indication: Breast cancer
     Dosage: 135 MILLIGRAM, QD
     Route: 042
     Dates: start: 20230523, end: 20230523
  5. PACLITAXEL [Suspect]
     Active Substance: PACLITAXEL
     Dosage: 135 MILLIGRAM, QD
     Route: 042
     Dates: start: 20230411, end: 20230411
  6. PACLITAXEL [Suspect]
     Active Substance: PACLITAXEL
     Dosage: 135 MILLIGRAM, QD
     Route: 042
     Dates: start: 20230418, end: 20230418
  7. PACLITAXEL [Suspect]
     Active Substance: PACLITAXEL
     Dosage: 135 MILLIGRAM, QD
     Route: 042
     Dates: start: 20230425, end: 20230425
  8. KEYTRUDA [Suspect]
     Active Substance: PEMBROLIZUMAB
     Indication: Product used for unknown indication
     Dosage: 200 MILLIGRAM, QD
     Route: 042
     Dates: start: 20230523, end: 20230523
  9. KEYTRUDA [Suspect]
     Active Substance: PEMBROLIZUMAB
     Dosage: 200 MILLIGRAM, QD
     Route: 042
     Dates: start: 20230411, end: 20230411

REACTIONS (2)
  - Anaphylactic reaction [Recovered/Resolved]
  - Drug eruption [Unknown]

NARRATIVE: CASE EVENT DATE: 20230502
